FAERS Safety Report 19913822 (Version 2)
Quarter: 2021Q4

REPORT INFORMATION
  Report Type: Spontaneous
  Country: JP (occurrence: JP)
  Receive Date: 20211004
  Receipt Date: 20211007
  Transmission Date: 20220303
  Serious: Yes (Hospitalization)
  Sender: FDA-Public Use
  Company Number: JP-DSJP-DSJ-2021-131725AA

PATIENT
  Age: 71 Year
  Sex: Female
  Weight: 63 kg

DRUGS (18)
  1. OLMESARTAN MEDOXOMIL [Suspect]
     Active Substance: OLMESARTAN MEDOXOMIL
     Indication: Hypertension
     Dosage: 20 MG, QD
     Route: 048
     Dates: end: 2018
  2. IMIDAPRIL HYDROCHLORIDE [Suspect]
     Active Substance: IMIDAPRIL HYDROCHLORIDE
     Indication: Hypertension
     Dosage: 5 MG, QD
     Route: 048
     Dates: end: 2018
  3. SITAGLIPTIN PHOSPHATE [Suspect]
     Active Substance: SITAGLIPTIN PHOSPHATE
     Indication: Diabetes mellitus
     Dosage: 50 MG, QD
     Route: 048
     Dates: end: 2018
  4. SITAGLIPTIN PHOSPHATE [Suspect]
     Active Substance: SITAGLIPTIN PHOSPHATE
     Dosage: 50 MG, QD
     Route: 048
     Dates: start: 2018
  5. METHOTREXATE [Concomitant]
     Active Substance: METHOTREXATE
     Dosage: 4 MG, BID, AFTER BREAKFAST AND DINNER (SATURDAY)
     Route: 048
     Dates: end: 2018
  6. METHOTREXATE [Concomitant]
     Active Substance: METHOTREXATE
     Dosage: 4 MG, BID, AFTER BREAKFAST AND DINNER (SATURDAY)
     Route: 048
     Dates: start: 2018
  7. FOLIC ACID [Concomitant]
     Active Substance: FOLIC ACID
     Dosage: 10 MG, QD, AFTER BREAKFAST (MONDAY)
     Route: 048
     Dates: end: 2018
  8. FOLIC ACID [Concomitant]
     Active Substance: FOLIC ACID
     Dosage: 10 MG, QD, AFTER BREAKFAST (MONDAY)
     Route: 048
     Dates: start: 2018
  9. REBAMIPIDE [Concomitant]
     Active Substance: REBAMIPIDE
     Dosage: 100 MG, BID, AFTER BREAKFAST AND DINNER
     Route: 048
     Dates: end: 2018
  10. UNSPECIFIED INGREDIENT [Concomitant]
     Active Substance: UNSPECIFIED INGREDIENT
     Dosage: 1 G, TID, AFTER MEAL
     Route: 048
     Dates: end: 2018
  11. FEXOFENADINE HYDROCHLORIDE [Concomitant]
     Active Substance: FEXOFENADINE HYDROCHLORIDE
     Dosage: 60 MG, BID, AFTER BREAKFAST AND DINNER
     Route: 048
     Dates: end: 2018
  12. ESOMEPRAZOLE MAGNESIUM [Concomitant]
     Active Substance: ESOMEPRAZOLE MAGNESIUM
     Dosage: 20 MG, QD, AFTER DINNER
     Route: 048
     Dates: end: 2018
  13. AMLODIPINE BESYLATE [Concomitant]
     Active Substance: AMLODIPINE BESYLATE
     Dosage: 2.5MG AFTER BREAKFAST, 5MG AFTER DINNER, BID
     Route: 048
     Dates: end: 2018
  14. AMLODIPINE BESYLATE [Concomitant]
     Active Substance: AMLODIPINE BESYLATE
     Dosage: UNK
     Route: 048
     Dates: start: 2018
  15. METFORMIN HYDROCHLORIDE [Concomitant]
     Active Substance: METFORMIN HYDROCHLORIDE
     Dosage: 250 MG, BID, AFTER BREAKFAST AND DINNER
     Route: 048
     Dates: end: 2018
  16. MEPENZOLATE BROMIDE [Concomitant]
     Active Substance: MEPENZOLATE BROMIDE
     Dosage: 7.5 MG, TID, AFTER MEAL
     Route: 048
     Dates: end: 2018
  17. BUDESONIDE\FORMOTEROL FUMARATE [Concomitant]
     Active Substance: BUDESONIDE\FORMOTEROL FUMARATE
     Indication: Cough
     Dosage: 2 INHALATION, BID
     Dates: start: 2018, end: 2018
  18. MONTELUKAST SODIUM [Concomitant]
     Active Substance: MONTELUKAST SODIUM
     Indication: Cough
     Dosage: 10 MG, QD, BEFORE SLEEP
     Route: 048
     Dates: start: 2018, end: 2018

REACTIONS (4)
  - Tongue oedema [Recovering/Resolving]
  - Pharyngeal oedema [Recovering/Resolving]
  - Abdominal pain lower [Recovering/Resolving]
  - Cough [Recovered/Resolved]

NARRATIVE: CASE EVENT DATE: 20180801
